FAERS Safety Report 23369807 (Version 1)
Quarter: 2024Q1

REPORT INFORMATION
  Report Type: Spontaneous
  Country: US (occurrence: US)
  Receive Date: 20240105
  Receipt Date: 20240105
  Transmission Date: 20240410
  Serious: No
  Sender: FDA-Public Use
  Company Number: CID000000000043181

PATIENT
  Age: 38 Year

DRUGS (2)
  1. UZEDY [Suspect]
     Active Substance: RISPERIDONE
     Indication: Schizophrenia
     Dosage: 250/0.7 MG/ML
     Route: 065
     Dates: start: 2023
  2. UZEDY [Suspect]
     Active Substance: RISPERIDONE
     Dosage: 250/0.7 MG/ML
     Route: 065
     Dates: start: 20231221

REACTIONS (1)
  - Injection site mass [Unknown]

NARRATIVE: CASE EVENT DATE: 20230101
